FAERS Safety Report 9162859 (Version 1)
Quarter: 2013Q1

REPORT INFORMATION
  Report Type: Spontaneous
  Country: US (occurrence: US)
  Receive Date: 20130314
  Receipt Date: 20130314
  Transmission Date: 20140127
  Serious: Yes (Other)
  Sender: FDA-Public Use
  Company Number: PHEH2013US005907

PATIENT
  Sex: Female

DRUGS (6)
  1. DIOVAN HCT [Suspect]
     Dosage: 1 DF, (80/12.5MG), QD
     Route: 048
  2. DIOVAN [Suspect]
     Dosage: UNK UKN, UNK
  3. METFORMIN [Concomitant]
  4. VERAPAMIL [Concomitant]
     Dosage: UNK UKN, UNK
  5. LEVOTHYROXINE [Concomitant]
     Dosage: UNK UKN, UNK
  6. LOVASTATIN [Concomitant]
     Dosage: UNK UKN, UNK

REACTIONS (1)
  - Neoplasm malignant [Not Recovered/Not Resolved]
